FAERS Safety Report 8787237 (Version 1)
Quarter: 2012Q4

REPORT INFORMATION
  Report Type: 
  Country: CH (occurrence: CH)
  Receive Date: 20120914
  Receipt Date: 20120914
  Transmission Date: 20130627
  Serious: Yes (Other)
  Sender: FDA-Public Use
  Company Number: CH-AMGEN-CHESP2012056501

PATIENT
  Age: 71 Year
  Sex: Female

DRUGS (2)
  1. ENBREL [Suspect]
     Indication: JUVENILE ARTHRITIS
     Dosage: 50 mg, weekly
     Dates: end: 201112
  2. METHOTREXATE [Concomitant]
     Dosage: UNK

REACTIONS (1)
  - Haemoglobin decreased [Recovered/Resolved]
